FAERS Safety Report 6725775-8 (Version None)
Quarter: 2010Q2

REPORT INFORMATION
  Report Type: 
  Country: None (occurrence: None)
  Receive Date: 20100514
  Receipt Date: 20100505
  Transmission Date: 20101027
  Serious: Yes (Other)
  Sender: FDA-Public Use
  Company Number: AU-AMGEN-US272517

PATIENT
  Sex: Female
  Weight: 23.4 kg

DRUGS (3)
  1. ARANESP [Suspect]
     Indication: DIALYSIS
     Dates: start: 20040311, end: 20050802
  2. EPREX [Suspect]
     Route: 058
     Dates: start: 20060811, end: 20060930
  3. TACROLIMUS [Concomitant]
     Dates: start: 20050722, end: 20050831

REACTIONS (4)
  - APLASIA PURE RED CELL [None]
  - DRUG INEFFECTIVE [None]
  - DRUG SPECIFIC ANTIBODY ABSENT [None]
  - PANCYTOPENIA [None]
